FAERS Safety Report 6890720-1 (Version None)
Quarter: 2010Q3

REPORT INFORMATION
  Report Type: 
  Country: None (occurrence: None)
  Receive Date: 20100731
  Receipt Date: 20090227
  Transmission Date: 20110219
  Serious: No
  Sender: FDA-Public Use
  Company Number: US-PFIZER INC-2008009128

PATIENT
  Sex: Male
  Weight: 84.09 kg

DRUGS (7)
  1. LIPITOR [Suspect]
     Dosage: 20 MG, 1X/DAY
     Dates: start: 19970101
  2. GABAPENTIN [Concomitant]
     Indication: CONVULSION
  3. ACETYLSALICYLIC ACID SRT [Concomitant]
  4. LIBRIUM [Concomitant]
     Indication: TREMOR
  5. ALEVE (CAPLET) [Concomitant]
     Indication: ARTHRITIS
  6. NITRO-SPRAY [Concomitant]
  7. MULTI-VITAMINS [Concomitant]

REACTIONS (3)
  - BLOOD TRIGLYCERIDES INCREASED [None]
  - CONSTIPATION [None]
  - WRONG TECHNIQUE IN DRUG USAGE PROCESS [None]
